FAERS Safety Report 9470678 (Version 1)
Quarter: 2013Q3

REPORT INFORMATION
  Report Type: Spontaneous
  Country: US (occurrence: None)
  Receive Date: 20130820
  Receipt Date: 20130820
  Transmission Date: 20140515
  Serious: Yes (Other)
  Sender: FDA-Public Use
  Company Number: None

PATIENT
  Sex: Male
  Weight: 97.07 kg

DRUGS (6)
  1. GEODON [Suspect]
     Indication: SOMNOLENCE
     Dosage: 80 MG 2 PILLS QID AT BEDTIME BY MOUTH PO
     Route: 048
     Dates: start: 20040915, end: 20041116
  2. COLACE [Concomitant]
  3. ZANTAC [Concomitant]
  4. PRILOSEC [Concomitant]
  5. QVAR INHALER [Concomitant]
  6. VENTOLIN INHALOR [Concomitant]

REACTIONS (3)
  - Dyspnoea [None]
  - Pollakiuria [None]
  - Enuresis [None]
